FAERS Safety Report 7628817-0 (Version None)
Quarter: 2011Q3

REPORT INFORMATION
  Report Type: 
  Country: None (occurrence: None)
  Receive Date: 20110722
  Receipt Date: 20110719
  Transmission Date: 20111222
  Serious: Yes (Other)
  Sender: FDA-Public Use
  Company Number: US-PFIZER INC-2011164379

PATIENT
  Sex: Male
  Weight: 82 kg

DRUGS (2)
  1. PIROXICAM [Suspect]
     Indication: PROCEDURAL PAIN
     Dosage: UNK
     Dates: end: 20110101
  2. FELDENE [Suspect]
     Indication: PROCEDURAL PAIN
     Dosage: UNK
     Route: 048
     Dates: end: 20110101

REACTIONS (1)
  - CARDIAC VALVE REPLACEMENT COMPLICATION [None]
